FAERS Safety Report 6248730-3 (Version None)
Quarter: 2009Q2

REPORT INFORMATION
  Report Type: 
  Country: None (occurrence: None)
  Receive Date: 20090625
  Receipt Date: 20090625
  Transmission Date: 20091009
  Serious: Yes (Hospitalization)
  Sender: FDA-Public Use
  Company Number: None

PATIENT
  Sex: Female
  Weight: 68.6 kg

DRUGS (5)
  1. CYCLOPHOSPHAMIDE [Suspect]
     Dosage: 1080 MG
  2. DOXORUBICIN HCL [Suspect]
     Dosage: 108 MG
  3. TAXOL [Suspect]
     Dosage: 315 MG
  4. ADALAT [Concomitant]
  5. DILANTIN [Concomitant]

REACTIONS (1)
  - PULMONARY EMBOLISM [None]
